FAERS Safety Report 11955024 (Version 1)
Quarter: 2016Q1

REPORT INFORMATION
  Report Type: Report from Study
  Country: US (occurrence: US)
  Receive Date: 20160125
  Receipt Date: 20160125
  Transmission Date: 20160526
  Serious: No
  Sender: FDA-Public Use
  Company Number: US-ABBVIE-15K-163-1350187-00

PATIENT
  Sex: Male
  Weight: 181.6 kg

DRUGS (2)
  1. HUMIRA [Suspect]
     Active Substance: ADALIMUMAB
     Indication: PSORIASIS
     Route: 065
     Dates: start: 201411, end: 201411
  2. HUMIRA [Suspect]
     Active Substance: ADALIMUMAB
     Dosage: ONE WEEK LATER
     Route: 065
     Dates: start: 2014, end: 20150105

REACTIONS (8)
  - Furuncle [Recovering/Resolving]
  - Disturbance in attention [Recovered/Resolved]
  - Cyst [Not Recovered/Not Resolved]
  - Thinking abnormal [Recovered/Resolved]
  - Psoriasis [Not Recovered/Not Resolved]
  - Thinking abnormal [Recovering/Resolving]
  - Disturbance in attention [Not Recovered/Not Resolved]
  - Furuncle [Recovered/Resolved]

NARRATIVE: CASE EVENT DATE: 2014
